FAERS Safety Report 5818779-0 (Version None)
Quarter: 2008Q3

REPORT INFORMATION
  Report Type: 
  Country: None (occurrence: None)
  Receive Date: 20080723
  Receipt Date: 20080710
  Transmission Date: 20090109
  Serious: Yes (Other)
  Sender: FDA-Public Use
  Company Number: US-KINGPHARMUSA00001-K200800824

PATIENT

DRUGS (2)
  1. AVINZA [Suspect]
  2. MONOAMINE OXIDASE INHIBITOR [Concomitant]

REACTIONS (1)
  - DYSKINESIA [None]
